FAERS Safety Report 5082971-6 (Version None)
Quarter: 2006Q3

REPORT INFORMATION
  Report Type: 
  Country: None (occurrence: None)
  Receive Date: 20060814
  Receipt Date: 20060731
  Transmission Date: 20061208
  Serious: Yes (Congenital Anomaly)
  Sender: FDA-Public Use
  Company Number: S06-NLD-03141-02

PATIENT
  Sex: Female
  Weight: 3 kg

DRUGS (1)
  1. CITALOPRAM HYDROBROMIDE [Suspect]
     Indication: DEPRESSION
     Dosage: 20 MG BID TRANSPLACENTAL
     Route: 064
     Dates: start: 20050101, end: 20060714

REACTIONS (3)
  - ANAL ATRESIA [None]
  - DRUG EXPOSURE DURING PREGNANCY [None]
  - PREMATURE BABY [None]
